FAERS Safety Report 21885130 (Version 1)
Quarter: 2023Q1

REPORT INFORMATION
  Report Type: Spontaneous
  Country: PT (occurrence: PT)
  Receive Date: 20230119
  Receipt Date: 20230119
  Transmission Date: 20230417
  Serious: Yes (Life-Threatening)
  Sender: FDA-Public Use
  Company Number: PT-Atnahs Limited-ATNAHS20230100155

PATIENT
  Age: 48 Year
  Sex: Female
  Weight: 63 kg

DRUGS (4)
  1. KETOROLAC [Suspect]
     Active Substance: KETOROLAC TROMETHAMINE
     Indication: Analgesic therapy
     Dosage: 10 MG EM B LUS
     Route: 050
     Dates: start: 20230105, end: 20230105
  2. KETOROLAC [Suspect]
     Active Substance: KETOROLAC TROMETHAMINE
     Indication: Antiinflammatory therapy
  3. TRAMADOL [Concomitant]
     Active Substance: TRAMADOL
     Indication: Product used for unknown indication
  4. METOCLOPRAMIDE HYDROCHLORIDE [Concomitant]
     Active Substance: METOCLOPRAMIDE HYDROCHLORIDE
     Indication: Product used for unknown indication

REACTIONS (1)
  - Arteriospasm coronary [Recovering/Resolving]

NARRATIVE: CASE EVENT DATE: 20230105
